FAERS Safety Report 4874795-7 (Version None)
Quarter: 2006Q1

REPORT INFORMATION
  Report Type: 
  Country: None (occurrence: None)
  Receive Date: 20060104
  Receipt Date: 20051220
  Transmission Date: 20060701
  Serious: Yes (Hospitalization)
  Sender: FDA-Public Use
  Company Number: 2005150833

PATIENT
  Age: 58 Year
  Sex: Male
  Weight: 67 kg

DRUGS (2)
  1. NORVASC [Suspect]
     Indication: HYPERTENSION
     Dosage: 2.5 MG (2.5 MG, 1 IN 1 D); ORAL
     Route: 048
     Dates: start: 19990524
  2. BLOPRESS (CANDESARTAN CILEXETIL) [Suspect]
     Indication: HYPERTENSION
     Dosage: 4 MG (4 MG, 1 IN 1 D); ORAL
     Route: 048
     Dates: start: 20050108, end: 20051102

REACTIONS (5)
  - CEREBROVASCULAR ACCIDENT [None]
  - DIZZINESS [None]
  - HYPOKALAEMIA [None]
  - MUSCLE DISORDER [None]
  - RHABDOMYOLYSIS [None]
